FAERS Safety Report 4364893-9 (Version None)
Quarter: 2004Q2

REPORT INFORMATION
  Report Type: 
  Country: None (occurrence: None)
  Receive Date: 20040526
  Receipt Date: 20030604
  Transmission Date: 20050107
  Serious: Yes (Other)
  Sender: FDA-Public Use
  Company Number: 12295879

PATIENT
  Age: 74 Year
  Sex: Female

DRUGS (2)
  1. CISPLATIN [Suspect]
     Indication: SMALL CELL CARCINOMA
     Dosage: ON DAY 1
  2. ETOPOSIDE [Suspect]
     Indication: SMALL CELL CARCINOMA
     Dosage: DAYS 1 TO 3

REACTIONS (1)
  - TUMOUR LYSIS SYNDROME [None]
